FAERS Safety Report 4621540-6 (Version None)
Quarter: 2005Q1

REPORT INFORMATION
  Report Type: 
  Country: None (occurrence: None)
  Receive Date: 20050328
  Receipt Date: 20031209
  Transmission Date: 20050727
  Serious: Yes (Death)
  Sender: FDA-Public Use
  Company Number: 9643

PATIENT
  Age: 75 Year
  Sex: Female

DRUGS (2)
  1. METHOTREXATE [Suspect]
     Indication: RHEUMATOID ARTHRITIS
     Dosage: 12.5 MG WEEKLY
     Route: 048
     Dates: start: 19970701, end: 19990101
  2. FOLIC ACID [Concomitant]

REACTIONS (4)
  - GRANULOCYTE COUNT DECREASED [None]
  - LYMPHOPENIA [None]
  - PNEUMONIA PNEUMOCOCCAL [None]
  - WHITE BLOOD CELL COUNT DECREASED [None]
